FAERS Safety Report 14794260 (Version 2)
Quarter: 2018Q2

REPORT INFORMATION
  Report Type: Report from Study
  Country: CA (occurrence: CA)
  Receive Date: 20180423
  Receipt Date: 20180522
  Transmission Date: 20180711
  Serious: Yes (Other)
  Sender: FDA-Public Use
  Company Number: CA-HLSUS-2018-CA-000608

PATIENT
  Age: 27 Year
  Sex: Male

DRUGS (7)
  1. BREO ELLIPTA [Concomitant]
     Active Substance: FLUTICASONE FUROATE\VILANTEROL TRIFENATATE
     Dosage: 100/25 T QAM
  2. CLONAZEPAM. [Concomitant]
     Active Substance: CLONAZEPAM
     Dosage: 1MG TID
     Route: 048
  3. CLONIDINE. [Concomitant]
     Active Substance: CLONIDINE
     Indication: SALIVARY HYPERSECRETION
     Dosage: 0.05MG QHS
  4. RABEPRAZOLE [Concomitant]
     Active Substance: RABEPRAZOLE
     Dosage: 50MG QAM
     Route: 048
  5. LORATIDINE [Concomitant]
     Active Substance: LORATADINE
     Dosage: 10MG QAM
     Route: 048
  6. VENTOLIN [Concomitant]
     Active Substance: ALBUTEROL SULFATE
     Dosage: TT Q4 HRS PRN
     Route: 048
  7. CLOZARIL [Suspect]
     Active Substance: CLOZAPINE
     Dosage: 400MG QHS
     Route: 048
     Dates: start: 20160819

REACTIONS (9)
  - Ventricular hypokinesia [Unknown]
  - Cardiomyopathy [Unknown]
  - Left ventricular dysfunction [Unknown]
  - Tricuspid valve incompetence [Unknown]
  - Pulmonary valve incompetence [Unknown]
  - Tachycardia [Unknown]
  - Pneumonia [Unknown]
  - Dyspnoea exertional [Unknown]
  - Mitral valve incompetence [Unknown]

NARRATIVE: CASE EVENT DATE: 201803
